FAERS Safety Report 8773085 (Version 1)
Quarter: 2012Q4

REPORT INFORMATION
  Report Type: 
  Country: US (occurrence: US)
  Receive Date: 20120907
  Receipt Date: 20120907
  Transmission Date: 20130627
  Serious: Yes (Other)
  Sender: FDA-Public Use
  Company Number: US-ASTELLAS-2012US007498

PATIENT
  Sex: Female
  Weight: 82 kg

DRUGS (6)
  1. VESICARE [Suspect]
     Indication: POLLAKIURIA
     Dosage: UNK
     Route: 048
  2. VESICARE [Suspect]
     Indication: MICTURITION URGENCY
  3. TOVIAZ [Suspect]
     Indication: MICTURITION URGENCY
     Dosage: 4 mg, UID/QD
     Route: 065
     Dates: start: 20120801
  4. TOVIAZ [Suspect]
     Indication: MICTURITION URGENCY
  5. LISINOPRIL [Concomitant]
     Indication: HYPERTENSION
     Dosage: 40 mg, bid
     Route: 048
  6. AMLODIPINE BESILATE [Concomitant]
     Indication: HYPERTENSION
     Dosage: 5 mg, UID/QD
     Route: 065

REACTIONS (3)
  - Drug ineffective [Not Recovered/Not Resolved]
  - Breast cancer [Unknown]
  - Renal disorder [Unknown]
